FAERS Safety Report 26071323 (Version 3)
Quarter: 2025Q4

REPORT INFORMATION
  Report Type: Spontaneous
  Country: EU (occurrence: EU)
  Receive Date: 20251120
  Receipt Date: 20251203
  Transmission Date: 20260118
  Serious: Yes (Life-Threatening, Hospitalization, Other)
  Sender: SANDOZ
  Company Number: None

PATIENT
  Age: 60 Year
  Sex: Male

DRUGS (20)
  1. CYCLOPHOSPHAMIDE [Suspect]
     Active Substance: CYCLOPHOSPHAMIDE
     Indication: B-cell type acute leukaemia
     Dosage: PRE PHASE D3-5
     Route: 065
  2. CYCLOPHOSPHAMIDE [Suspect]
     Active Substance: CYCLOPHOSPHAMIDE
     Indication: Acute lymphocytic leukaemia
     Dosage: REMISSION INDUCTION PHASE II D21, 35
     Route: 065
  3. CYTARABINE [Suspect]
     Active Substance: CYTARABINE
     Indication: Acute lymphocytic leukaemia
     Dosage: REMISSION-INDUCTION PHASE I D13
     Route: 037
  4. CYTARABINE [Suspect]
     Active Substance: CYTARABINE
     Indication: B-cell type acute leukaemia
     Dosage: REMISSION-INDUCTION PHASE II D21, 28, 35
     Route: 037
  5. DEXAMETHASONE [Suspect]
     Active Substance: DEXAMETHASONE
     Indication: Acute lymphocytic leukaemia
     Dosage: REMISSION-INDUCTION PHASE I D7, 8, D13, 14-17
     Route: 037
  6. DEXAMETHASONE [Suspect]
     Active Substance: DEXAMETHASONE
     Dosage: REMISSION-INDUCTION PHASE II D7, 8, 14- 17, D21, 28, 35
     Route: 037
  7. DEXAMETHASONE [Suspect]
     Active Substance: DEXAMETHASONE
     Indication: B-cell type acute leukaemia
     Dosage: INDUCTION PHASE I: D7, 8, 14-17, ; INDUCTION PHASE II: D7, 8, 14-17, QD
     Route: 037
  8. IDARUBICIN [Suspect]
     Active Substance: IDARUBICIN
     Indication: B-cell type acute leukaemia
     Dosage: REMISSION-INDUCTION PHASE I D7, 8, 14, 15
     Route: 065
  9. IDARUBICIN [Suspect]
     Active Substance: IDARUBICIN
     Indication: Acute lymphocytic leukaemia
  10. METHOTREXATE [Suspect]
     Active Substance: METHOTREXATE
     Dosage: CONSOLIDATION CHEMOTHERAPY HDMTX D2, 16
     Route: 037
  11. METHOTREXATE [Suspect]
     Active Substance: METHOTREXATE
     Indication: B-cell type acute leukaemia
     Dosage: DIAGNOSTIC AND PRE-PHASE THERAPY D5
     Route: 037
  12. METHOTREXATE [Suspect]
     Active Substance: METHOTREXATE
     Dosage: REMISSION-INDUCTION PHASE I D13
     Route: 037
  13. METHOTREXATE [Suspect]
     Active Substance: METHOTREXATE
     Indication: Acute lymphocytic leukaemia
     Dosage: REMISSION-INDUCTION PHASE II D21, 28, 35
     Route: 037
  14. PEG/L-ASPARAGINASE [Suspect]
     Active Substance: PEGASPARGASE
     Indication: B-cell type acute leukaemia
     Dosage: CONSOLIDATION CHEMOTHERAPY: D3, 17, QD
     Route: 065
  15. PEG/L-ASPARAGINASE [Suspect]
     Active Substance: PEGASPARGASE
     Indication: Acute lymphocytic leukaemia
  16. RITUXIMAB [Suspect]
     Active Substance: RITUXIMAB
     Indication: Acute lymphocytic leukaemia
     Dosage: CONSOLIDATION CHEMOTHERAPY D1
     Route: 037
  17. RITUXIMAB [Suspect]
     Active Substance: RITUXIMAB
     Dosage: REMISSION-INDUCTION PHASE I D6
     Route: 037
  18. RITUXIMAB [Suspect]
     Active Substance: RITUXIMAB
     Indication: B-cell type acute leukaemia
     Dosage: REMISSION-INDUCTION PHASE II D20
     Route: 037
  19. VINCRISTINE [Suspect]
     Active Substance: VINCRISTINE
     Indication: B-cell type acute leukaemia
     Dosage: REMISSION-INDUCTION PHASE I D7, 14
     Route: 065
  20. VINCRISTINE [Suspect]
     Active Substance: VINCRISTINE
     Indication: Acute lymphocytic leukaemia

REACTIONS (15)
  - Thrombocytopenia [Unknown]
  - Rash [Unknown]
  - Septic encephalopathy [Unknown]
  - Sepsis [Unknown]
  - Haematological infection [Unknown]
  - Pneumonia [Unknown]
  - Septic shock [Unknown]
  - Anaphylactic reaction [Unknown]
  - Subdural haematoma [Unknown]
  - Anaemia [Unknown]
  - Seizure [Unknown]
  - Hyperbilirubinaemia [Recovered/Resolved]
  - Lipase increased [Unknown]
  - Antithrombin III deficiency [Unknown]
  - Supraventricular tachycardia [Unknown]
